FAERS Safety Report 5265375-2 (Version None)
Quarter: 2007Q1

REPORT INFORMATION
  Report Type: 
  Country: None (occurrence: None)
  Receive Date: 20061213
  Receipt Date: 20040120
  Transmission Date: 20070707
  Serious: Yes (Other)
  Sender: FDA-Public Use
  Company Number: 2004UW00988

PATIENT
  Age: 29 Year
  Sex: Female
  Weight: 68.0396 kg

DRUGS (4)
  1. IRESSA [Suspect]
     Indication: NON-SMALL CELL LUNG CANCER
  2. PAIN MEDICATION [Concomitant]
  3. VITAMIN CAP [Concomitant]
  4. IBUPROFEN [Concomitant]

REACTIONS (1)
  - NECK PAIN [None]
